FAERS Safety Report 10357984 (Version 1)
Quarter: 2014Q3

REPORT INFORMATION
  Report Type: Spontaneous
  Country: GB (occurrence: GB)
  Receive Date: 20140801
  Receipt Date: 20140801
  Transmission Date: 20150326
  Serious: Yes (Other)
  Sender: FDA-Public Use
  Company Number: GB-TEVA-497086ISR

PATIENT
  Sex: Male

DRUGS (1)
  1. BACLOFEN. [Suspect]
     Active Substance: BACLOFEN
     Dosage: 2000 MCG PER ML VIA AN IMPLANTED PUMP
     Route: 037

REACTIONS (2)
  - Inflammation [Unknown]
  - Muscle spasticity [Unknown]
